FAERS Safety Report 9059790 (Version 2)
Quarter: 2013Q1

REPORT INFORMATION
  Report Type: Report from Study
  Country: FR (occurrence: FR)
  Receive Date: 20130212
  Receipt Date: 20130228
  Transmission Date: 20140127
  Serious: Yes (Hospitalization)
  Sender: FDA-Public Use
  Company Number: FR-CELGENEUS-056-50794-13014701

PATIENT
  Age: 76 None
  Sex: Male

DRUGS (5)
  1. VIDAZA [Suspect]
     Indication: MYELODYSPLASTIC SYNDROME
     Dosage: 75 MILLIGRAM/SQ. METER
     Route: 058
     Dates: start: 20130114, end: 20130120
  2. REVLIMID [Suspect]
     Indication: MYELODYSPLASTIC SYNDROME
     Dosage: 10 MILLIGRAM
     Route: 048
     Dates: start: 20130114, end: 20130127
  3. LIPANTHYL [Concomitant]
     Indication: HYPERCHOLESTEROLAEMIA
     Dosage: 145
     Route: 048
  4. AXELER [Concomitant]
     Indication: HYPERTENSION
     Dosage: 20/5
     Route: 048
  5. BISOPROLOL [Concomitant]
     Indication: CARDIAC FAILURE
     Dosage: 2.5
     Route: 048

REACTIONS (2)
  - Spondylitis [Recovering/Resolving]
  - Neck pain [Recovering/Resolving]
